FAERS Safety Report 11173219 (Version 3)
Quarter: 2015Q3

REPORT INFORMATION
  Report Type: Report from Study
  Country: NL (occurrence: NL)
  Receive Date: 20150608
  Receipt Date: 20150721
  Transmission Date: 20151125
  Serious: Yes (Hospitalization)
  Sender: FDA-Public Use
  Company Number: NL-ABBVIE-15P-114-1401519-00

PATIENT
  Sex: Male
  Weight: 72 kg

DRUGS (1)
  1. DUODOPA [Suspect]
     Active Substance: CARBIDOPA\LEVODOPA
     Indication: PARKINSON^S DISEASE
     Dosage: 20/5 MG/ML CONTINUOUS, SEE NARRATIVE
     Route: 050
     Dates: start: 20130820

REACTIONS (16)
  - Dizziness [Recovered/Resolved]
  - Abnormal dreams [Recovered/Resolved]
  - Stoma site discharge [Recovered/Resolved]
  - Confusional state [Recovered/Resolved]
  - Dyskinesia [Not Recovered/Not Resolved]
  - Hypotension [Recovered/Resolved]
  - On and off phenomenon [Recovered/Resolved]
  - Vomiting [Recovered/Resolved]
  - Nausea [Recovered/Resolved]
  - Memory impairment [Recovered/Resolved]
  - Hallucination [Recovering/Resolving]
  - Heart rate irregular [Recovered/Resolved]
  - Eructation [Recovered/Resolved]
  - Stoma site erythema [Recovering/Resolving]
  - Micturition urgency [Recovered/Resolved]
  - Muscle spasms [Recovered/Resolved]
